FAERS Safety Report 16587645 (Version 3)
Quarter: 2022Q2

REPORT INFORMATION
  Report Type: Spontaneous
  Country: BR (occurrence: BR)
  Receive Date: 20190717
  Receipt Date: 20220628
  Transmission Date: 20220721
  Serious: Yes (Other)
  Sender: FDA-Public Use
  Company Number: BR-GLAXOSMITHKLINE-BR2019AMR124454

PATIENT

DRUGS (1)
  1. BENLYSTA [Suspect]
     Active Substance: BELIMUMAB
     Indication: Systemic lupus erythematosus
     Dosage: UNK
     Dates: start: 20180828

REACTIONS (5)
  - Systemic lupus erythematosus [Unknown]
  - Peripheral swelling [Unknown]
  - Arthralgia [Unknown]
  - Malaise [Unknown]
  - Inappropriate schedule of product administration [Unknown]
